FAERS Safety Report 7277746-3 (Version None)
Quarter: 2011Q1

REPORT INFORMATION
  Report Type: 
  Country: None (occurrence: None)
  Receive Date: 20110207
  Receipt Date: 20110202
  Transmission Date: 20110831
  Serious: Yes (Life-Threatening, Hospitalization, Other)
  Sender: FDA-Public Use
  Company Number: DE-ASTRAZENECA-2011SE05761

PATIENT
  Age: 33 Year
  Sex: Female
  Weight: 68 kg

DRUGS (2)
  1. SEROQUEL [Suspect]
     Dosage: 100/200 MG; 200-900 MG DAILY PER OS
     Route: 048
     Dates: start: 20100508, end: 20101108
  2. CIPRALEX [Suspect]
     Indication: DEPRESSION
     Dosage: 10-40 MG DAILY PER OS
     Route: 048
     Dates: start: 20100806, end: 20101111

REACTIONS (1)
  - LONG QT SYNDROME [None]
